FAERS Safety Report 23527065 (Version 1)
Quarter: 2024Q1

REPORT INFORMATION
  Report Type: Report from Study
  Country: US (occurrence: US)
  Receive Date: 20240215
  Receipt Date: 20240215
  Transmission Date: 20240409
  Serious: Yes (Hospitalization, Other)
  Sender: FDA-Public Use
  Company Number: US-OTSUKA-2023_029196

PATIENT
  Age: 60 Year
  Sex: Male
  Weight: 93.08 kg

DRUGS (1)
  1. CEDAZURIDINE\DECITABINE [Suspect]
     Active Substance: CEDAZURIDINE\DECITABINE
     Indication: Myelodysplastic syndrome
     Dosage: 1 DF (35 MG DECITABINE AND 100 MG CEDAZURIDINE) DAILY (ON DAYS 1-5) OF EACH 28-DAY CYCLE
     Route: 048
     Dates: start: 20231102

REACTIONS (7)
  - Full blood count abnormal [Unknown]
  - Acute febrile neutrophilic dermatosis [Unknown]
  - Mood altered [Recovering/Resolving]
  - Depression [Unknown]
  - Tendonitis [Unknown]
  - Fatigue [Unknown]
  - Headache [Unknown]

NARRATIVE: CASE EVENT DATE: 20231102
